FAERS Safety Report 6157350-0 (Version None)
Quarter: 2009Q2

REPORT INFORMATION
  Report Type: 
  Country: None (occurrence: None)
  Receive Date: 20090416
  Receipt Date: 20090402
  Transmission Date: 20091009
  Serious: Yes (Other)
  Sender: FDA-Public Use
  Company Number: US-BAYER-200911069BCC

PATIENT
  Age: 79 Year
  Sex: Female
  Weight: 57 kg

DRUGS (3)
  1. ALEVE [Suspect]
     Indication: INFLAMMATION
     Dosage: TOTAL DAILY DOSE: 200 MG
     Dates: start: 20090402, end: 20090402
  2. COLAZAPAM [Concomitant]
  3. LUNESTA [Concomitant]

REACTIONS (1)
  - SOMNOLENCE [None]
